FAERS Safety Report 6120957-0 (Version None)
Quarter: 2009Q1

REPORT INFORMATION
  Report Type: 
  Country: None (occurrence: None)
  Receive Date: 20090312
  Receipt Date: 20090226
  Transmission Date: 20090719
  Serious: Yes (Hospitalization)
  Sender: FDA-Public Use
  Company Number: 000005077

PATIENT
  Age: 55 Year
  Sex: Male

DRUGS (10)
  1. CITALOPRAM HYDROBROMIDE [Suspect]
     Indication: DEPRESSION
     Dosage: 20 MG (20 MG, 1 IN 1 D), ORAL
     Route: 048
     Dates: start: 20070301
  2. FALITHROM (3 MILLIGRAM, TABLETS) [Suspect]
     Indication: PULMONARY EMBOLISM
     Dosage: 3 MG (3 MG, 1 IN 1 D), ORAL
     Route: 048
     Dates: start: 20070301, end: 20081029
  3. ATMADISC [Concomitant]
  4. DERMATIN [Concomitant]
  5. FERROUS SULFATE TAB [Concomitant]
  6. FLUANXOL [Concomitant]
  7. PANTOZOL [Concomitant]
  8. SIMVAGAMMA [Concomitant]
  9. VERAGAMMA [Concomitant]
  10. VITAMIN B-12 [Concomitant]

REACTIONS (13)
  - ACTIVATED PARTIAL THROMBOPLASTIN TIME PROLONGED [None]
  - BASILAR ARTERY THROMBOSIS [None]
  - BLOOD UREA INCREASED [None]
  - CARDIOVASCULAR INSUFFICIENCY [None]
  - CEREBELLAR INFARCTION [None]
  - DISEASE RECURRENCE [None]
  - EROSIVE OESOPHAGITIS [None]
  - GASTRITIS EROSIVE [None]
  - HAEMORRHAGIC ANAEMIA [None]
  - INTERNATIONAL NORMALISED RATIO INCREASED [None]
  - PLATELET COUNT INCREASED [None]
  - PROTHROMBIN TIME PROLONGED [None]
  - UPPER GASTROINTESTINAL HAEMORRHAGE [None]
